FAERS Safety Report 5249020-8 (Version None)
Quarter: 2007Q1

REPORT INFORMATION
  Report Type: 
  Country: None (occurrence: None)
  Receive Date: 20070228
  Receipt Date: 20060616
  Transmission Date: 20070707
  Serious: No
  Sender: FDA-Public Use
  Company Number: US-GLAXOSMITHKLINE-A0606945A

PATIENT
  Age: 56 Year
  Sex: Female

DRUGS (1)
  1. VALTREX [Suspect]
     Dosage: 500MG THREE TIMES PER DAY
     Route: 048
     Dates: start: 20060422, end: 20060423

REACTIONS (6)
  - BLOOD PRESSURE INCREASED [None]
  - CHEST PAIN [None]
  - FEELING ABNORMAL [None]
  - HEADACHE [None]
  - HEART RATE INCREASED [None]
  - NASAL CONGESTION [None]
